FAERS Safety Report 23745312 (Version 1)
Quarter: 2024Q2

REPORT INFORMATION
  Report Type: Spontaneous
  Country: US (occurrence: US)
  Receive Date: 20240416
  Receipt Date: 20240416
  Transmission Date: 20240716
  Serious: No
  Sender: FDA-Public Use
  Company Number: US-SA-SAC20240410000927

PATIENT
  Age: 45 Year
  Sex: Female

DRUGS (2)
  1. DUPIXENT [Suspect]
     Active Substance: DUPILUMAB
     Indication: Dermatitis atopic
     Dosage: 300 MG, QOW
     Route: 058
     Dates: start: 202212
  2. HISTAMINE [Suspect]
     Active Substance: HISTAMINE
     Dosage: UNK

REACTIONS (7)
  - Histamine level increased [Unknown]
  - Dry skin [Unknown]
  - Multiple allergies [Unknown]
  - Rash macular [Unknown]
  - Rash [Unknown]
  - Eczema [Unknown]
  - Injection site erythema [Unknown]

NARRATIVE: CASE EVENT DATE: 20240405
